FAERS Safety Report 8914737 (Version 2)
Quarter: 2012Q4

REPORT INFORMATION
  Report Type: 
  Country: JP (occurrence: JP)
  Receive Date: 20121119
  Receipt Date: 20121212
  Transmission Date: 20130627
  Serious: No
  Sender: FDA-Public Use
  Company Number: JP-ASTRAZENECA-2012SE86041

PATIENT
  Sex: Female

DRUGS (1)
  1. XYLOCAINE INJECTION [Suspect]
     Indication: LOCAL ANAESTHESIA
     Dosage: Dose unknown
     Route: 065

REACTIONS (1)
  - Blood pressure decreased [Recovered/Resolved]
